FAERS Safety Report 13908782 (Version 5)
Quarter: 2017Q4

REPORT INFORMATION
  Report Type: Spontaneous
  Country: BE (occurrence: BE)
  Receive Date: 20170827
  Receipt Date: 20171116
  Transmission Date: 20180320
  Serious: Yes (Hospitalization, Other)
  Sender: FDA-Public Use
  Company Number: PHHY2017BE121584

PATIENT
  Age: 28 Year
  Sex: Female

DRUGS (4)
  1. COSENTYX [Suspect]
     Active Substance: SECUKINUMAB
     Dosage: 2 DF, QMO
     Route: 058
     Dates: end: 201705
  2. VITAMIN D [Concomitant]
     Active Substance: CHOLECALCIFEROL
     Indication: PRODUCT USED FOR UNKNOWN INDICATION
     Dosage: 100000 U, QMO
     Route: 065
  3. DURACEF [Concomitant]
     Active Substance: CEFADROXIL
     Indication: HYPERSENSITIVITY
     Route: 065
  4. COSENTYX [Suspect]
     Active Substance: SECUKINUMAB
     Indication: PSORIASIS
     Dosage: 2 DF, QW
     Route: 058
     Dates: start: 201703

REACTIONS (30)
  - Pharyngeal inflammation [Recovering/Resolving]
  - Erythema [Unknown]
  - Tonsillitis [Unknown]
  - Face oedema [Unknown]
  - Oral candidiasis [Unknown]
  - Tongue ulceration [Recovering/Resolving]
  - Glossodynia [Not Recovered/Not Resolved]
  - Oral pain [Not Recovered/Not Resolved]
  - Chills [Unknown]
  - Oral disorder [Unknown]
  - Cervix oedema [Unknown]
  - Pyrexia [Unknown]
  - Fatigue [Unknown]
  - Pharyngitis [Unknown]
  - Herpangina [Unknown]
  - Neutrophilic dermatosis [Unknown]
  - Erythema multiforme [Unknown]
  - Stevens-Johnson syndrome [Recovering/Resolving]
  - Metrorrhagia [Recovered/Resolved]
  - Glossitis [Unknown]
  - Dysgeusia [Not Recovered/Not Resolved]
  - Rash maculo-papular [Recovering/Resolving]
  - Dehydration [Recovered/Resolved]
  - Dysphagia [Unknown]
  - Oropharyngeal pain [Unknown]
  - Angina pectoris [Unknown]
  - Stomatitis [Unknown]
  - Rash pustular [Unknown]
  - Hypokalaemia [Recovered/Resolved]
  - Tongue discolouration [Unknown]

NARRATIVE: CASE EVENT DATE: 2017
